FAERS Safety Report 18152101 (Version 2)
Quarter: 2020Q3

REPORT INFORMATION
  Report Type: Spontaneous
  Country: DE (occurrence: DE)
  Receive Date: 20200814
  Receipt Date: 20200827
  Transmission Date: 20201103
  Serious: Yes (Hospitalization)
  Sender: FDA-Public Use
  Company Number: DE-TORRENT-00018124

PATIENT
  Age: 59 Year
  Sex: Female

DRUGS (5)
  1. CITALOPRAM [Suspect]
     Active Substance: CITALOPRAM HYDROBROMIDE
     Indication: PRODUCT USED FOR UNKNOWN INDICATION
     Dosage: UNKNOWN
  2. LEVOTHYROXIN?SODIUM [Concomitant]
     Indication: PRODUCT USED FOR UNKNOWN INDICATION
     Dosage: 75 G, 1?0?0?0
  3. CIATYL?Z DEPOT [Suspect]
     Active Substance: ZUCLOPENTHIXOL DECANOATE
     Indication: PRODUCT USED FOR UNKNOWN INDICATION
     Dosage: 3 ML, 14 DAYS, PRE?FILLED SYRINGES
  4. PREGABALIN. [Suspect]
     Active Substance: PREGABALIN
     Indication: PRODUCT USED FOR UNKNOWN INDICATION
     Dosage: 150 MG, 1?0?0?1
  5. FUROSEMID [Concomitant]
     Active Substance: FUROSEMIDE
     Indication: PRODUCT USED FOR UNKNOWN INDICATION
     Dosage: 20 MG

REACTIONS (2)
  - Dizziness [Unknown]
  - Fall [Unknown]
